FAERS Safety Report 5001961-2 (Version None)
Quarter: 2006Q2

REPORT INFORMATION
  Report Type: 
  Country: None (occurrence: None)
  Receive Date: 20060515
  Receipt Date: 20051123
  Transmission Date: 20061013
  Serious: Yes (Other)
  Sender: FDA-Public Use
  Company Number: US-MERCK-0511USA04235

PATIENT
  Age: 53 Year
  Sex: Male
  Weight: 70 kg

DRUGS (1)
  1. VIOXX [Suspect]
     Indication: ARTHRITIS
     Route: 048
     Dates: start: 20021001, end: 20030201

REACTIONS (1)
  - CEREBROVASCULAR ACCIDENT [None]
